FAERS Safety Report 7297738-8 (Version None)
Quarter: 2011Q1

REPORT INFORMATION
  Report Type: 
  Country: None (occurrence: None)
  Receive Date: 20110214
  Receipt Date: 20110214
  Transmission Date: 20110831
  Serious: Yes (Death)
  Sender: FDA-Public Use
  Company Number: None

PATIENT
  Age: 71 Year
  Sex: Female
  Weight: 76 kg

DRUGS (1)
  1. EFFIENT [Suspect]
     Dosage: 10MG DAILY PO
     Route: 048
     Dates: start: 20101210, end: 20101216

REACTIONS (5)
  - AGITATION [None]
  - DYSPNOEA [None]
  - EPISTAXIS [None]
  - CARDIO-RESPIRATORY ARREST [None]
  - RECTAL HAEMORRHAGE [None]
